FAERS Safety Report 6306855-8 (Version None)
Quarter: 2009Q3

REPORT INFORMATION
  Report Type: 
  Country: None (occurrence: None)
  Receive Date: 20090812
  Receipt Date: 20081212
  Transmission Date: 20100115
  Serious: Yes (Other)
  Sender: FDA-Public Use
  Company Number: US-PFIZER INC-2008042131

PATIENT
  Sex: Female
  Weight: 85.714 kg

DRUGS (17)
  1. LYRICA [Suspect]
     Indication: FIBROMYALGIA
     Dosage: 100 MG, 3X/DAY
     Route: 048
     Dates: start: 20080601, end: 20090101
  2. LYRICA [Suspect]
     Route: 048
     Dates: start: 20080101, end: 20081001
  3. CELEBREX [Suspect]
     Indication: ARTHRITIS
     Dosage: 100 MG, 2X/DAY
     Dates: start: 20070101, end: 20081211
  4. NEURONTIN [Suspect]
     Indication: HERPES ZOSTER
     Dosage: 400 MG, 3X/DAY
  5. LORTAB [Concomitant]
     Indication: BREAKTHROUGH PAIN
     Dosage: 7.5 MG, AS NEEDED
     Dates: start: 20081001, end: 20081211
  6. LORTAB [Concomitant]
     Indication: MIGRAINE
  7. LORTAB [Concomitant]
     Indication: PAIN
  8. LORTAB [Concomitant]
     Indication: ILL-DEFINED DISORDER
  9. XANAX [Concomitant]
  10. PREMARIN [Concomitant]
  11. RESTORIL [Concomitant]
  12. ELAVIL [Concomitant]
  13. DETROL LA [Concomitant]
     Indication: URINARY INCONTINENCE
     Dosage: UNK
  14. TYLENOL (CAPLET) [Concomitant]
     Dosage: UNK
  15. ACICLOVIR [Concomitant]
     Indication: MIGRAINE
     Dosage: UNK
  16. ACICLOVIR [Concomitant]
     Indication: HERPES ZOSTER
  17. CELEXA [Concomitant]
     Indication: POST-TRAUMATIC STRESS DISORDER
     Dosage: UNK

REACTIONS (22)
  - ASTHENIA [None]
  - BACK INJURY [None]
  - COMMUNICATION DISORDER [None]
  - DISTURBANCE IN ATTENTION [None]
  - DIZZINESS [None]
  - EPISTAXIS [None]
  - FATIGUE [None]
  - FEELING ABNORMAL [None]
  - FLUID RETENTION [None]
  - HAEMOPTYSIS [None]
  - HYPOAESTHESIA [None]
  - ILL-DEFINED DISORDER [None]
  - INSOMNIA [None]
  - JOINT INJURY [None]
  - MUSCLE SPASMS [None]
  - NAUSEA [None]
  - SCIATIC NERVE INJURY [None]
  - SOMNOLENCE [None]
  - THINKING ABNORMAL [None]
  - VERTIGO [None]
  - VISION BLURRED [None]
  - WEIGHT INCREASED [None]
